FAERS Safety Report 9275069 (Version 1)
Quarter: 2013Q2

REPORT INFORMATION
  Report Type: Report from Study
  Country: CA (occurrence: CA)
  Receive Date: 20130507
  Receipt Date: 20130507
  Transmission Date: 20140414
  Serious: Yes (Other)
  Sender: FDA-Public Use
  Company Number: PHHY2011CA94146

PATIENT
  Sex: Female
  Weight: 104.31 kg

DRUGS (2)
  1. EXTAVIA [Suspect]
     Indication: RELAPSING-REMITTING MULTIPLE SCLEROSIS
     Dosage: 9.6 MIU, QW3
     Route: 058
     Dates: start: 20110909
  2. BACLOFEN [Suspect]
     Dosage: UNK UKN, UNK

REACTIONS (22)
  - Parkinson^s disease [Unknown]
  - Dysgraphia [Unknown]
  - Insomnia [Unknown]
  - Muscle twitching [Recovering/Resolving]
  - Oropharyngeal pain [Recovering/Resolving]
  - Increased bronchial secretion [Recovering/Resolving]
  - Cough decreased [Recovering/Resolving]
  - Skin reaction [Recovering/Resolving]
  - Pruritus [Recovering/Resolving]
  - Dry skin [Recovering/Resolving]
  - Skin discomfort [Recovering/Resolving]
  - Limb discomfort [Recovering/Resolving]
  - Musculoskeletal stiffness [Recovering/Resolving]
  - Dyspnoea [Recovering/Resolving]
  - Tremor [Recovering/Resolving]
  - Pyrexia [Recovering/Resolving]
  - Injection site pain [Recovering/Resolving]
  - Pain in extremity [Recovering/Resolving]
  - Neck pain [Recovering/Resolving]
  - Back pain [Recovering/Resolving]
  - Headache [Recovering/Resolving]
  - Eye pain [Recovering/Resolving]
